FAERS Safety Report 10034716 (Version 1)
Quarter: 2014Q1

REPORT INFORMATION
  Report Type: Report from Study
  Country: US (occurrence: US)
  Receive Date: 20140325
  Receipt Date: 20140325
  Transmission Date: 20141002
  Serious: No
  Sender: FDA-Public Use
  Company Number: US-ASTRAZENECA-2014SE17893

PATIENT
  Sex: Female

DRUGS (1)
  1. ARIMIDEX [Suspect]
     Dosage: UNKNOWN
     Route: 048

REACTIONS (7)
  - Nervousness [Unknown]
  - Depression [Unknown]
  - Panic reaction [Unknown]
  - Feeling abnormal [Unknown]
  - Depressed mood [Unknown]
  - Fatigue [Unknown]
  - Drug dose omission [Unknown]
